FAERS Safety Report 4842768-6 (Version None)
Quarter: 2005Q4

REPORT INFORMATION
  Report Type: 
  Country: None (occurrence: None)
  Receive Date: 20051128
  Receipt Date: 20051111
  Transmission Date: 20060501
  Serious: Yes (Hospitalization)
  Sender: FDA-Public Use
  Company Number: CLOF-10157

PATIENT
  Age: 73 Year
  Sex: Male

DRUGS (2)
  1. CLOFARABINE [Suspect]
     Indication: ACUTE MYELOID LEUKAEMIA
     Dosage: 68.7 MG QD X 5 IV
     Route: 042
     Dates: start: 20050406, end: 20050410
  2. CYTARABINE [Suspect]
     Indication: ACUTE MYELOID LEUKAEMIA
     Dosage: 46 MG QD IV
     Route: 042
     Dates: start: 20050406, end: 20050419

REACTIONS (2)
  - CONFUSIONAL STATE [None]
  - URINARY RETENTION [None]
